FAERS Safety Report 4358527-7 (Version None)
Quarter: 2004Q2

REPORT INFORMATION
  Report Type: 
  Country: None (occurrence: None)
  Receive Date: 20040512
  Receipt Date: 20040430
  Transmission Date: 20050107
  Serious: Yes (Hospitalization)
  Sender: FDA-Public Use
  Company Number: 2004-DE-02402GD

PATIENT
  Age: 44 Year
  Sex: Male

DRUGS (2)
  1. AZATHIOPRINE [Suspect]
     Indication: CROHN'S DISEASE
     Dosage: 100 MG
     Dates: start: 20021201
  2. BUDESONIDE (BUDESONIDE) [Suspect]
     Indication: CROHN'S DISEASE
     Dosage: 9 MG
     Dates: start: 20021201

REACTIONS (8)
  - ABDOMINAL PAIN [None]
  - ABDOMINAL PAIN LOWER [None]
  - ABNORMAL FAECES [None]
  - CROHN'S DISEASE [None]
  - DIARRHOEA [None]
  - HAEMOGLOBIN DECREASED [None]
  - PANCREATITIS [None]
  - RECTAL HAEMORRHAGE [None]
